FAERS Safety Report 24748060 (Version 1)
Quarter: 2024Q4

REPORT INFORMATION
  Report Type: Report from Study
  Country: IE (occurrence: IE)
  Receive Date: 20241218
  Receipt Date: 20241218
  Transmission Date: 20250115
  Serious: Yes (Other)
  Sender: ROCHE
  Company Number: IE-ROCHE-3399274

PATIENT
  Sex: Male

DRUGS (1)
  1. OCREVUS [Suspect]
     Active Substance: OCRELIZUMAB
     Indication: Product used for unknown indication
     Dosage: 2 VIALS 300MGS
     Route: 042

REACTIONS (5)
  - Gait disturbance [Unknown]
  - Fatigue [Unknown]
  - COVID-19 [Unknown]
  - Urinary tract infection [Unknown]
  - Mobility decreased [Unknown]
